FAERS Safety Report 8626006-4 (Version None)
Quarter: 2012Q3

REPORT INFORMATION
  Report Type: 
  Country: None (occurrence: None)
  Receive Date: 20120827
  Receipt Date: 20120814
  Transmission Date: 20120928
  Serious: Yes (Hospitalization, Other)
  Sender: FDA-Public Use
  Company Number: JP-VERTEX PHARMACEUTICAL INC.-AE-2012-010834

PATIENT
  Age: 40 Year
  Sex: Male

DRUGS (12)
  1. PEGINTERFERON ALFA-2B [Concomitant]
     Dosage: 1.5 UNK, UNK
     Route: 058
     Dates: start: 20120508, end: 20120627
  2. REBETOL [Concomitant]
     Dosage: 600 MG, QD
     Route: 048
     Dates: start: 20120518, end: 20120528
  3. REBETOL [Concomitant]
     Dosage: 400 MG, QD
     Route: 048
     Dates: start: 20120704, end: 20120806
  4. SEDEKOPAN [Concomitant]
     Dosage: 1.5 MG, QD
     Route: 048
  5. REBETOL [Concomitant]
     Dosage: 800 MG, QD
     Route: 048
     Dates: start: 20120508, end: 20120517
  6. ALLOPURINOL [Concomitant]
     Dosage: 300 MG, QD
     Route: 048
  7. VX-950 [Suspect]
     Indication: HEPATITIS C
     Dosage: 2000 MG, QD
     Route: 048
     Dates: start: 20120508, end: 20120627
  8. PEGINTERFERON ALFA-2B [Concomitant]
     Dosage: 1.5 UNK, UNK
     Route: 058
     Dates: start: 20120704
  9. GASMOTIN [Concomitant]
     Dosage: 15 MG, QD
     Route: 048
  10. REBETOL [Concomitant]
     Dosage: 200 MG, QD
     Route: 048
     Dates: end: 20120627
  11. REBETOL [Concomitant]
     Dosage: 400 MG, QD
     Route: 048
     Dates: start: 20120529, end: 20120703
  12. PERORIC [Concomitant]
     Dosage: 30 MG, QD
     Route: 048

REACTIONS (4)
  - ANAEMIA [None]
  - BLOOD CREATININE INCREASED [None]
  - CHOLECYSTITIS ACUTE [None]
  - WHITE BLOOD CELL COUNT DECREASED [None]
